FAERS Safety Report 5963252-2 (Version None)
Quarter: 2008Q4

REPORT INFORMATION
  Report Type: 
  Country: None (occurrence: None)
  Receive Date: 20081124
  Receipt Date: 20081114
  Transmission Date: 20090506
  Serious: Yes (Hospitalization)
  Sender: FDA-Public Use
  Company Number: GB-ROCHE-597381

PATIENT
  Sex: Female
  Weight: 91.2 kg

DRUGS (9)
  1. ORLISTAT [Suspect]
     Indication: OBESITY
     Route: 048
  2. ACETAMINOPHEN [Concomitant]
     Indication: PAIN
     Route: 048
  3. TRAMADOL HCL [Concomitant]
     Indication: PAIN
     Route: 048
  4. GLUCOSAMINE SULPHATE [Concomitant]
     Indication: ARTHRITIS
     Route: 048
  5. OMEPRAZOLE [Concomitant]
     Dosage: INDICATION REPORTED AS GASTRIC.
     Route: 048
  6. RAMIPRIL [Concomitant]
     Indication: HYPERTENSION
     Route: 048
  7. BECLOMETHASONE DIPROPIONATE [Concomitant]
     Indication: ASTHMA
  8. BECLOMETHASONE DIPROPIONATE [Concomitant]
     Dosage: ROUTE AND INDICATION REPORTED AS NASAL
  9. ALBUTEROL SULFATE [Concomitant]
     Indication: ASTHMA

REACTIONS (1)
  - KNEE ARTHROPLASTY [None]
